FAERS Safety Report 6058179-4 (Version None)
Quarter: 2009Q1

REPORT INFORMATION
  Report Type: 
  Country: None (occurrence: None)
  Receive Date: 20090127
  Receipt Date: 20090127
  Transmission Date: 20090719
  Serious: Yes (Hospitalization)
  Sender: FDA-Public Use
  Company Number: None

PATIENT
  Age: 66 Year
  Sex: Female
  Weight: 64 kg

DRUGS (13)
  1. IRINOTECAN SOLUTION FOR INFUSION [Suspect]
     Indication: COLORECTAL CANCER METASTATIC
     Dosage: 180 MG/M**2 Q2W IV
     Route: 042
     Dates: start: 20080401, end: 20080401
  2. PLACEBO SOLUTION FOR INFUSION [Suspect]
     Indication: COLORECTAL CANCER METASTATIC
     Dosage: 4 MG/KG Q2W IV
     Route: 042
     Dates: start: 20080401, end: 20080401
  3. FLUOROURACIL [Suspect]
     Indication: COLORECTAL CANCER METASTATIC
     Dosage: Q2W IV
     Route: 042
     Dates: start: 20080401
  4. LEUCOVORIN SOLUTION FOR INFUSION [Suspect]
     Indication: COLORECTAL CANCER METASTATIC
     Dosage: 400 MG/M**2 Q2W IV
     Route: 042
     Dates: start: 20080401, end: 20080401
  5. RAMIPRIL [Concomitant]
  6. OBSIDAN [Concomitant]
  7. DOLORMIN [Concomitant]
  8. IBUPROFEN [Concomitant]
  9. VOLTAREN [Concomitant]
  10. TRAMADOL HCL [Concomitant]
  11. DIPYRONE INJ [Concomitant]
  12. ACETAMINOPHEN [Concomitant]
  13. MIRTEL [Concomitant]

REACTIONS (11)
  - AORTIC DILATATION [None]
  - COLONIC STENOSIS [None]
  - HAEMORRHAGIC DISORDER [None]
  - HEPATIC MASS [None]
  - METASTASES TO LIVER [None]
  - PAIN IN EXTREMITY [None]
  - PALLOR [None]
  - PERIPHERAL EMBOLISM [None]
  - POOR PERIPHERAL CIRCULATION [None]
  - THROMBOSIS [None]
  - TUMOUR MARKER INCREASED [None]
